FAERS Safety Report 6800697-2 (Version None)
Quarter: 2010Q2

REPORT INFORMATION
  Report Type: 
  Country: None (occurrence: None)
  Receive Date: 20100629
  Receipt Date: 20100623
  Transmission Date: 20101027
  Serious: Yes (Death)
  Sender: FDA-Public Use
  Company Number: GR-NOVOPROD-310725

PATIENT
  Sex: Female
  Weight: 111 kg

DRUGS (6)
  1. LEVEMIR [Suspect]
     Indication: DIABETES MELLITUS
     Dosage: 8 UNK, BID
     Route: 058
     Dates: start: 20091117, end: 20100122
  2. NOVORAPID [Suspect]
     Indication: DIABETES MELLITUS
     Dosage: 16 UNK, QID
     Dates: start: 20091117, end: 20100122
  3. SIMVASTATIN [Concomitant]
     Indication: DYSLIPIDAEMIA
     Dosage: UNK
     Dates: start: 20090204, end: 20100122
  4. ASPIRIN [Concomitant]
     Indication: DIABETES MELLITUS
     Dosage: UNK
     Dates: start: 20091109, end: 20100122
  5. METFORMIN HCL [Concomitant]
     Indication: DIABETES MELLITUS
     Dosage: UNK
     Dates: start: 19960101, end: 20100122
  6. RAMIPRIL [Concomitant]
     Indication: HYPERTENSION
     Dosage: UNK
     Dates: start: 20091109, end: 20100122

REACTIONS (1)
  - MYOCARDIAL INFARCTION [None]
